FAERS Safety Report 4278839-5 (Version None)
Quarter: 2004Q1

REPORT INFORMATION
  Report Type: 
  Country: None (occurrence: None)
  Receive Date: 20040122
  Receipt Date: 20040115
  Transmission Date: 20041129
  Serious: Yes (Death)
  Sender: FDA-Public Use
  Company Number: 163-20785-04010389

PATIENT
  Age: 71 Year
  Sex: Male

DRUGS (1)
  1. THALOMID [Suspect]
     Indication: MALIGNANT NEOPLASM OF EYE
     Dosage: 200 MG, DAILY,ORAL
     Route: 048
     Dates: start: 20031210

REACTIONS (1)
  - BRAIN NEOPLASM MALIGNANT [None]
